FAERS Safety Report 10026986 (Version 1)
Quarter: 2014Q1

REPORT INFORMATION
  Report Type: Spontaneous
  Country: DE (occurrence: DE)
  Receive Date: 20140321
  Receipt Date: 20140321
  Transmission Date: 20141002
  Serious: Yes (Hospitalization, Other)
  Sender: FDA-Public Use
  Company Number: DE-009507513-1403DEU006998

PATIENT
  Age: 71 Year
  Sex: Male

DRUGS (1)
  1. BCG LIVE [Suspect]
     Indication: BLADDER CANCER
     Dosage: UNK

REACTIONS (5)
  - Pulmonary fibrosis [Recovering/Resolving]
  - Acute respiratory distress syndrome [Recovering/Resolving]
  - Tracheostomy [Unknown]
  - Cystitis [Recovering/Resolving]
  - Pneumonitis [Recovering/Resolving]
